FAERS Safety Report 9058853 (Version 1)
Quarter: 2013Q1

REPORT INFORMATION
  Report Type: Report from Study
  Country: GB (occurrence: GB)
  Receive Date: 20130204
  Receipt Date: 20130204
  Transmission Date: 20140127
  Serious: Yes (Hospitalization)
  Sender: FDA-Public Use
  Company Number: GB-ROCHE-1185025

PATIENT
  Sex: Female

DRUGS (1)
  1. TOCILIZUMAB [Suspect]
     Indication: RHEUMATOID ARTHRITIS
     Route: 065
     Dates: start: 20110718

REACTIONS (6)
  - Diarrhoea [Unknown]
  - Rectal haemorrhage [Unknown]
  - Nausea [Unknown]
  - Abdominal pain upper [Unknown]
  - Dysphagia [Unknown]
  - Weight decreased [Unknown]
